FAERS Safety Report 22202867 (Version 5)
Quarter: 2023Q2

REPORT INFORMATION
  Report Type: Spontaneous
  Country: US (occurrence: US)
  Receive Date: 20230412
  Receipt Date: 20230629
  Transmission Date: 20230721
  Serious: No
  Sender: FDA-Public Use
  Company Number: US-PFIZER INC-PV202300063375

PATIENT
  Age: 42 Year
  Sex: Female

DRUGS (1)
  1. IBRANCE [Suspect]
     Active Substance: PALBOCICLIB
     Dosage: 125 MG

REACTIONS (20)
  - Chest pain [Unknown]
  - Back pain [Unknown]
  - Nausea [Unknown]
  - Nasopharyngitis [Unknown]
  - Cough [Not Recovered/Not Resolved]
  - Illness [Unknown]
  - Photosensitivity reaction [Not Recovered/Not Resolved]
  - Burning sensation [Unknown]
  - Pruritus [Recovering/Resolving]
  - Catheter site irritation [Unknown]
  - White blood cell count decreased [Unknown]
  - Rhinorrhoea [Unknown]
  - Sensitivity to weather change [Unknown]
  - Eye infection bacterial [Unknown]
  - Erythema [Unknown]
  - Sensitive skin [Unknown]
  - Headache [Unknown]
  - Migraine [Unknown]
  - Paraesthesia [Unknown]
  - Product dose omission issue [Unknown]

NARRATIVE: CASE EVENT DATE: 20230601
